FAERS Safety Report 4747486-0 (Version None)
Quarter: 2005Q3

REPORT INFORMATION
  Report Type: 
  Country: None (occurrence: None)
  Receive Date: 20050815
  Receipt Date: 20050628
  Transmission Date: 20060218
  Serious: No
  Sender: FDA-Public Use
  Company Number: USA0506101567

PATIENT
  Age: 58 Year
  Sex: Male

DRUGS (1)
  1. CIALIS [Suspect]
     Indication: ERECTILE DYSFUNCTION
     Dosage: 10 MG AS NEEDED
     Dates: start: 20050614

REACTIONS (4)
  - DRUG EFFECT PROLONGED [None]
  - ERECTILE DYSFUNCTION [None]
  - PAINFUL ERECTION [None]
  - PENIS DISORDER [None]
